FAERS Safety Report 14238310 (Version 1)
Quarter: 2017Q4

REPORT INFORMATION
  Report Type: Spontaneous
  Country: US (occurrence: US)
  Receive Date: 20171130
  Receipt Date: 20171130
  Transmission Date: 20180321
  Serious: No
  Sender: FDA-Public Use
  Company Number: US-PFIZER INC-2017510909

PATIENT
  Age: 62 Year
  Sex: Male
  Weight: 99.79 kg

DRUGS (3)
  1. ATROPINE SULFATE/DIPHENOXYLATE HYDROCHLORIDE [Suspect]
     Active Substance: ATROPINE SULFATE\DIPHENOXYLATE HYDROCHLORIDE
     Indication: DIARRHOEA
     Dosage: ORIGINALLY HE WAS TAKING THE MEDICATION 4 TIMES A DAY
     Dates: start: 2013
  2. METFORMIN [Concomitant]
     Active Substance: METFORMIN HYDROCHLORIDE
     Indication: DIABETES MELLITUS
     Dosage: 250MG TABLET, TWO TABLETS BY MOUTH TWICE A DAY
     Route: 048
     Dates: start: 2013
  3. ATROPINE SULFATE/DIPHENOXYLATE HYDROCHLORIDE [Suspect]
     Active Substance: ATROPINE SULFATE\DIPHENOXYLATE HYDROCHLORIDE
     Dosage: [DIPHENOXYLATE 2.5MG]/[ATROPINE 0.025MG] 1 DF, 2X/DAY
     Route: 048
     Dates: end: 201711

REACTIONS (2)
  - Constipation [Unknown]
  - Drug ineffective [Unknown]

NARRATIVE: CASE EVENT DATE: 201709
